FAERS Safety Report 9661060 (Version 2)
Quarter: 2013Q4

REPORT INFORMATION
  Report Type: Spontaneous
  Country: US (occurrence: US)
  Receive Date: 20131031
  Receipt Date: 20131106
  Transmission Date: 20140711
  Serious: No
  Sender: FDA-Public Use
  Company Number: US-009507513-1310USA013404

PATIENT
  Sex: Male

DRUGS (1)
  1. TINACTIN LIQUID SPRAY [Suspect]
     Indication: TINEA PEDIS
     Dosage: UNK UNK, BID
     Route: 062
     Dates: start: 20131015

REACTIONS (4)
  - Blister [Not Recovered/Not Resolved]
  - Rash [Not Recovered/Not Resolved]
  - Pruritus [Not Recovered/Not Resolved]
  - Burning sensation [Unknown]
